FAERS Safety Report 22365372 (Version 3)
Quarter: 2023Q4

REPORT INFORMATION
  Report Type: Report from Study
  Country: US (occurrence: US)
  Receive Date: 20230525
  Receipt Date: 20231114
  Transmission Date: 20240109
  Serious: Yes (Other)
  Sender: FDA-Public Use
  Company Number: US-ABBVIE-5179405

PATIENT
  Sex: Male

DRUGS (2)
  1. HUMIRA [Suspect]
     Active Substance: ADALIMUMAB
     Indication: Rheumatoid arthritis
     Route: 058
     Dates: start: 20180607
  2. HUMIRA [Suspect]
     Active Substance: ADALIMUMAB
     Route: 058
     Dates: start: 20191212

REACTIONS (7)
  - Hip arthroplasty [Unknown]
  - Eye disorder [Unknown]
  - Gait disturbance [Unknown]
  - Dry eye [Unknown]
  - Visual impairment [Unknown]
  - Arthropathy [Unknown]
  - Arthralgia [Unknown]
